FAERS Safety Report 10370406 (Version 1)
Quarter: 2014Q1

REPORT INFORMATION
  Report Type: Spontaneous
  Country: US (occurrence: None)
  Receive Date: 20140306
  Receipt Date: 20140306
  Transmission Date: 20141002
  Serious: Yes (Death, Hospitalization, Other)
  Sender: FDA-Public Use
  Company Number: 163-21880-13084122

PATIENT
  Age: 80 Year
  Sex: Male

DRUGS (30)
  1. REVLIMID [Suspect]
     Indication: PLASMA CELL MYELOMA
     Dosage: 10 MG, 14 IN 21 D, PO
     Route: 048
     Dates: start: 20121016
  2. ACYCLOVIR [Concomitant]
  3. ASPIRIN [Concomitant]
  4. CALCIUM 600 [Concomitant]
  5. CLOPIDOGREL [Concomitant]
  6. FISH OIL [Concomitant]
  7. HYDROCODONE-ACETAMINOPHEN [Concomitant]
  8. LASIX [Concomitant]
  9. MIRALAX [Concomitant]
  10. MULTIVITAMINS [Concomitant]
  11. OMEPRAZOLE [Concomitant]
  12. RAPAFLO [Concomitant]
  13. SOTALOL [Concomitant]
  14. STOOL SOFTENER [Concomitant]
  15. VITAMIN B12 [Concomitant]
  16. COUMADIN (WARFARIN SODIUM) (UNKNOWN) [Concomitant]
  17. PLAVIX [Concomitant]
  18. LIPITOR (ATORVASTATIN) (UNKNOWN) [Concomitant]
  19. ALBUTEROL [Concomitant]
  20. AZITHROMYCIN (UNKNOWN) [Concomitant]
  21. CEFEPIME (UNKNOWN) [Concomitant]
  22. FENTANYL (POULTICE OR PATCH) [Concomitant]
  23. FINASTERIDE (TABLETS) [Concomitant]
  24. HYDROMORPHONE (TABLETS) [Concomitant]
  25. IPRATROPIUM (SOLUTION) [Concomitant]
  26. TYLENOL (PARACETAMOL) (TABLETS) [Concomitant]
  27. VALACYCLOVIR (VALACICLOVIR) (TABLETS) [Concomitant]
  28. ZOFRAN (ONDANSETRON HYDROCHLORIDE) (INJECTION) [Concomitant]
  29. ZYVOX (LINEZOLID) (INJECTION) [Concomitant]
  30. LEVAQUIN (UNKNOWN) [Concomitant]

REACTIONS (5)
  - Sudden cardiac death [None]
  - Atrial fibrillation [None]
  - Pneumonia [None]
  - Hyperlipidaemia [None]
  - Hypertension [None]
